FAERS Safety Report 6775435-2 (Version None)
Quarter: 2010Q2

REPORT INFORMATION
  Report Type: 
  Country: None (occurrence: None)
  Receive Date: 20100617
  Receipt Date: 20100611
  Transmission Date: 20101027
  Serious: Yes (Hospitalization, Other)
  Sender: FDA-Public Use
  Company Number: US-MERCK-0903USA01373

PATIENT
  Age: 64 Year
  Sex: Female

DRUGS (2)
  1. FOSAMAX [Suspect]
     Indication: OSTEOPOROSIS
     Route: 048
     Dates: start: 19960601
  2. FOSAMAX [Suspect]
     Route: 048
     Dates: end: 20080601

REACTIONS (20)
  - ANXIETY [None]
  - BREAST CANCER [None]
  - BREAST CELLULITIS [None]
  - BREAST DISORDER [None]
  - BREAST HYPERPLASIA [None]
  - DEPRESSION [None]
  - EMOTIONAL DISTRESS [None]
  - FALL [None]
  - FEAR [None]
  - FEMUR FRACTURE [None]
  - HYPERCHOLESTEROLAEMIA [None]
  - INTRADUCTAL PAPILLOMA OF BREAST [None]
  - JAW DISORDER [None]
  - JOINT EFFUSION [None]
  - PAIN [None]
  - QUALITY OF LIFE DECREASED [None]
  - SLEEP DISORDER [None]
  - STRESS [None]
  - STRESS FRACTURE [None]
  - TOOTH DISORDER [None]
